FAERS Safety Report 6698665-7 (Version None)
Quarter: 2010Q2

REPORT INFORMATION
  Report Type: 
  Country: None (occurrence: None)
  Receive Date: 20100427
  Receipt Date: 20100414
  Transmission Date: 20101027
  Serious: Yes (Other)
  Sender: FDA-Public Use
  Company Number: PHHY2010CA23460

PATIENT
  Sex: Female

DRUGS (1)
  1. EXELON [Suspect]
     Indication: DEMENTIA
     Dosage: PATCH 5
     Route: 062
     Dates: start: 20091130, end: 20091205

REACTIONS (14)
  - AGGRESSION [None]
  - AGITATION [None]
  - ANXIETY [None]
  - DISORIENTATION [None]
  - FATIGUE [None]
  - HEMICEPHALALGIA [None]
  - HYPERTENSION [None]
  - IRRITABILITY [None]
  - MALAISE [None]
  - MUSCULOSKELETAL STIFFNESS [None]
  - PALLOR [None]
  - SPINAL OSTEOARTHRITIS [None]
  - TREMOR [None]
  - WEIGHT DECREASED [None]
